FAERS Safety Report 8063897-2 (Version None)
Quarter: 2012Q1

REPORT INFORMATION
  Report Type: 
  Country: None (occurrence: None)
  Receive Date: 20120123
  Receipt Date: 20120110
  Transmission Date: 20120608
  Serious: Yes (Hospitalization)
  Sender: FDA-Public Use
  Company Number: US-JNJFOC-20110106057

PATIENT
  Age: 26 Year
  Sex: Female
  Weight: 64.6 kg

DRUGS (7)
  1. DULOXETIME HYDROCHLORIDE [Concomitant]
  2. CLONAZEPAM [Concomitant]
  3. LITHIUM [Concomitant]
  4. QUETIAPINE [Concomitant]
  5. ACETAMINOPHEN [Suspect]
     Route: 048
  6. ARIPIPRAZOLE [Concomitant]
  7. ACETAMINOPHEN [Suspect]
     Indication: PRODUCT USED FOR UNKNOWN INDICATION
     Route: 048
     Dates: start: 20110108, end: 20110108

REACTIONS (3)
  - NAUSEA [None]
  - VOMITING [None]
  - INTENTIONAL OVERDOSE [None]
